FAERS Safety Report 8294102-X (Version None)
Quarter: 2012Q2

REPORT INFORMATION
  Report Type: 
  Country: None (occurrence: None)
  Receive Date: 20120418
  Receipt Date: 20120403
  Transmission Date: 20120825
  Serious: Yes (Other)
  Sender: FDA-Public Use
  Company Number: PHHY2012DE028976

PATIENT
  Age: 62 Year
  Sex: Female

DRUGS (1)
  1. MYCOPHENOLIC ACID [Suspect]
     Route: 048

REACTIONS (5)
  - ENTEROCOCCAL INFECTION [None]
  - RENAL FAILURE [None]
  - ESCHERICHIA INFECTION [None]
  - OLIGURIA [None]
  - UROSEPSIS [None]
